FAERS Safety Report 7833022-9 (Version None)
Quarter: 2011Q4

REPORT INFORMATION
  Report Type: 
  Country: None (occurrence: None)
  Receive Date: 20111024
  Receipt Date: 20111010
  Transmission Date: 20120403
  Serious: Yes (Other)
  Sender: FDA-Public Use
  Company Number: US-ELI_LILLY_AND_COMPANY-US201103001563

PATIENT
  Sex: Female

DRUGS (5)
  1. FORTEO [Suspect]
     Dosage: 20 UG, QD
     Route: 065
  2. NEURONTIN [Concomitant]
     Indication: FIBROMYALGIA
  3. FORTEO [Suspect]
     Dosage: 20 UG, QD
  4. FORTEO [Suspect]
     Indication: OSTEOPOROSIS
     Dosage: 20 UG, DAILY (1/D)
     Dates: start: 20110131
  5. FORTEO [Suspect]
     Dosage: 20 UG, QD
     Route: 065

REACTIONS (28)
  - TRANSIENT ISCHAEMIC ATTACK [None]
  - FIBROMYALGIA [None]
  - ARTHRALGIA [None]
  - PAIN [None]
  - ARTHROPATHY [None]
  - JOINT STIFFNESS [None]
  - TREMOR [None]
  - WEIGHT DECREASED [None]
  - NODULE [None]
  - RAYNAUD'S PHENOMENON [None]
  - MUSCULOSKELETAL STIFFNESS [None]
  - PAIN IN EXTREMITY [None]
  - GAIT DISTURBANCE [None]
  - INSOMNIA [None]
  - RASH [None]
  - DRUG DOSE OMISSION [None]
  - CREST SYNDROME [None]
  - NEURALGIA [None]
  - MOBILITY DECREASED [None]
  - MUSCLE SPASMS [None]
  - ANGIOPATHY [None]
  - CONSTIPATION [None]
  - NAUSEA [None]
  - MEMORY IMPAIRMENT [None]
  - BONE DISORDER [None]
  - MUSCULAR WEAKNESS [None]
  - FATIGUE [None]
  - INJECTION SITE HAEMATOMA [None]
